FAERS Safety Report 6901096-5 (Version None)
Quarter: 2010Q3

REPORT INFORMATION
  Report Type: 
  Country: None (occurrence: None)
  Receive Date: 20100708
  Receipt Date: 20090803
  Transmission Date: 20110219
  Serious: Yes (Other)
  Sender: FDA-Public Use
  Company Number: 2009216620

PATIENT
  Age: 37 Year
  Sex: Female
  Weight: 71.7 kg

DRUGS (5)
  1. CHANTIX [Suspect]
     Indication: SMOKING CESSATION THERAPY
     Dosage: 1 MG, 2X/DAY, ORAL
     Route: 048
     Dates: start: 20090401, end: 20090502
  2. ZOLOFT [Suspect]
     Dates: start: 20090401
  3. LOVAZA [Concomitant]
  4. FLONASE [Concomitant]
  5. IMTREX (SUMATRIPTAN SUCCINATE) [Concomitant]

REACTIONS (10)
  - AGITATION [None]
  - ANXIETY [None]
  - DEPRESSED MOOD [None]
  - EMOTIONAL DISORDER [None]
  - HALLUCINATION [None]
  - IMPAIRED WORK ABILITY [None]
  - INSOMNIA [None]
  - MEMORY IMPAIRMENT [None]
  - PERSONALITY CHANGE [None]
  - PSYCHOTIC DISORDER [None]
